FAERS Safety Report 13382568 (Version 5)
Quarter: 2019Q1

REPORT INFORMATION
  Report Type: Report from Study
  Country: US (occurrence: US)
  Receive Date: 20170329
  Receipt Date: 20190129
  Transmission Date: 20190417
  Serious: Yes (Other)
  Sender: FDA-Public Use
  Company Number: PHHY2017US044059

PATIENT
  Age: 62 Year
  Sex: Female

DRUGS (1)
  1. GILENYA [Suspect]
     Active Substance: FINGOLIMOD HYDROCHLORIDE
     Indication: MULTIPLE SCLEROSIS
     Dosage: UNK, QD
     Route: 048

REACTIONS (11)
  - Blood pressure increased [Unknown]
  - Oral herpes [Unknown]
  - Melanocytic naevus [Unknown]
  - Amnesia [Unknown]
  - Nasopharyngitis [Recovered/Resolved]
  - Seborrhoeic keratosis [Unknown]
  - Lentigo [Unknown]
  - Visual acuity reduced [Unknown]
  - Lymphocyte count decreased [Unknown]
  - Fatigue [Unknown]
  - Haemangioma of skin [Unknown]

NARRATIVE: CASE EVENT DATE: 20161119
